FAERS Safety Report 16793331 (Version 1)
Quarter: 2019Q3

REPORT INFORMATION
  Report Type: Spontaneous
  Country: CN (occurrence: CN)
  Receive Date: 20190911
  Receipt Date: 20190911
  Transmission Date: 20191005
  Serious: Yes (Other)
  Sender: FDA-Public Use
  Company Number: CN-ROCHE-2399919

PATIENT
  Age: 70 Year
  Sex: Male
  Weight: 56.2 kg

DRUGS (1)
  1. XELODA [Suspect]
     Active Substance: CAPECITABINE
     Indication: MALIGNANT ANORECTAL NEOPLASM
     Route: 048
     Dates: start: 20190712, end: 20190726

REACTIONS (1)
  - Peripheral paralysis [Recovering/Resolving]

NARRATIVE: CASE EVENT DATE: 20190726
